FAERS Safety Report 25353220 (Version 2)
Quarter: 2025Q2

REPORT INFORMATION
  Report Type: Spontaneous
  Country: ZA (occurrence: ZA)
  Receive Date: 20250523
  Receipt Date: 20250528
  Transmission Date: 20250717
  Serious: Yes (Death, Hospitalization)
  Sender: ELI LILLY AND COMPANY
  Company Number: ZA-ELI_LILLY_AND_COMPANY-ZA202505012788

PATIENT
  Sex: Male

DRUGS (1)
  1. IXEKIZUMAB [Suspect]
     Active Substance: IXEKIZUMAB
     Indication: Product used for unknown indication
     Route: 065

REACTIONS (3)
  - Intestinal perforation [Fatal]
  - Post procedural complication [Fatal]
  - Diverticulitis [Unknown]
